FAERS Safety Report 14109865 (Version 1)
Quarter: 2017Q4

REPORT INFORMATION
  Report Type: Spontaneous
  Country: US (occurrence: US)
  Receive Date: 20171020
  Receipt Date: 20171020
  Transmission Date: 20180321
  Serious: No
  Sender: FDA-Public Use
  Company Number: US-TEVA-796571USA

PATIENT
  Sex: Female
  Weight: 54.48 kg

DRUGS (1)
  1. EQUATE MICONAZOLE 3 [Suspect]
     Active Substance: MICONAZOLE
     Dosage: ONE TIME USE ONLY
     Dates: start: 20170807, end: 20170807

REACTIONS (2)
  - Drug ineffective [Unknown]
  - Product solubility abnormal [Unknown]
